FAERS Safety Report 5751060-7 (Version None)
Quarter: 2008Q2

REPORT INFORMATION
  Report Type: 
  Country: None (occurrence: None)
  Receive Date: 20080528
  Receipt Date: 20080520
  Transmission Date: 20081010
  Serious: Yes (Death)
  Sender: FDA-Public Use
  Company Number: GB-JNJFOC-20080504482

PATIENT
  Sex: Female
  Weight: 62 kg

DRUGS (8)
  1. REMICADE [Suspect]
     Indication: RHEUMATOID ARTHRITIS
     Route: 042
  2. BECLOMETHASONE DIPROPIONATE [Concomitant]
  3. CALCICHEW [Concomitant]
  4. DOTHIEPIN HYDROCHLORIDE [Concomitant]
  5. GAVISCON [Concomitant]
  6. HYPROMELLOSE [Concomitant]
  7. INHALERS [Concomitant]
  8. ACETAMINOPHEN [Concomitant]

REACTIONS (1)
  - DEATH [None]
